FAERS Safety Report 6311745-0 (Version None)
Quarter: 2009Q3

REPORT INFORMATION
  Report Type: 
  Country: None (occurrence: None)
  Receive Date: 20090813
  Receipt Date: 20090813
  Transmission Date: 20100115
  Serious: Yes (Life-Threatening, Disabling)
  Sender: FDA-Public Use
  Company Number: None

PATIENT
  Sex: Female

DRUGS (3)
  1. FOSAMAX [Suspect]
     Indication: OSTEOPENIA
     Dates: start: 20040101
  2. ACTONEL [Suspect]
     Indication: OSTEOPENIA
     Dates: start: 20050101
  3. BONIVA [Suspect]

REACTIONS (5)
  - APPARENT DEATH [None]
  - MUSCLE INJURY [None]
  - PAIN [None]
  - REACTION TO DRUG EXCIPIENTS [None]
  - SKELETAL INJURY [None]
